FAERS Safety Report 8629770 (Version 2)
Quarter: 2014Q1

REPORT INFORMATION
  Report Type: Spontaneous
  Country: US (occurrence: None)
  Receive Date: 20120323
  Receipt Date: 20140306
  Transmission Date: 20141002
  Serious: Yes (Life-Threatening, Other)
  Sender: FDA-Public Use
  Company Number: 163-21880-11070772

PATIENT
  Age: 56 Year
  Sex: Male
  Weight: 74.4 kg

DRUGS (7)
  1. REVLIMID [Suspect]
     Indication: PLASMA CELL MYELOMA
     Dosage: 15 MG, 1 IN 1 D, PO
     Route: 048
     Dates: start: 20110404, end: 2011
  2. DEXAMETHASONE ( DEXAMETHASONE) ( TABLETS) [Concomitant]
  3. LOMOTIL ( LOMOTIL) (TABLETS) [Concomitant]
  4. VELCADE ( BORTEZOMIB) [Concomitant]
  5. ONDANSETRON HCL ( ONDANSETRON HYDROCHLORIDE) (TABLETS) [Concomitant]
  6. MUCINEX DM ( TUSSIN DM) (TABLETS) [Concomitant]
  7. ASPIRIN ( ACETYLSALICYLIC ACID) (TABLETS) [Concomitant]

REACTIONS (4)
  - Thrombosis [None]
  - Thrombosis [None]
  - Nasal congestion [None]
  - Multiple allergies [None]
